FAERS Safety Report 4883128-1 (Version None)
Quarter: 2006Q1

REPORT INFORMATION
  Report Type: 
  Country: None (occurrence: None)
  Receive Date: 20060117
  Receipt Date: 20060117
  Transmission Date: 20060701
  Serious: Yes (Life-Threatening, Hospitalization, Disabling)
  Sender: FDA-Public Use
  Company Number: None

PATIENT
  Age: 65 Year
  Sex: Male
  Weight: 69.8539 kg

DRUGS (2)
  1. AGRYLIN [Suspect]
     Indication: MYELOPROLIFERATIVE DISORDER
     Dosage: 1 MG   3 TABS DAILY  PO
     Route: 048
     Dates: start: 20010401, end: 20051010
  2. AGRYLIN [Suspect]
     Indication: THROMBOCYTHAEMIA
     Dosage: 1 MG   3 TABS DAILY  PO
     Route: 048
     Dates: start: 20010401, end: 20051010

REACTIONS (4)
  - ATRIAL FIBRILLATION [None]
  - CARDIAC ARREST [None]
  - CARDIAC FAILURE CONGESTIVE [None]
  - VENTRICULAR FIBRILLATION [None]
